FAERS Safety Report 8388290 (Version 2)
Quarter: 2012Q4

REPORT INFORMATION
  Report Type: 
  Country: US (occurrence: US)
  Receive Date: 20120203
  Receipt Date: 20121129
  Transmission Date: 20130627
  Serious: No
  Sender: FDA-Public Use
  Company Number: US-GLAXOSMITHKLINE-A0936074A

PATIENT
  Age: 29 Year
  Sex: Female
  Weight: 90.5 kg

DRUGS (4)
  1. WELLBUTRIN SR [Suspect]
     Indication: DEPRESSION
     Dosage: 100MG Twice per day
     Route: 048
     Dates: start: 2010
  2. LAMICTAL [Suspect]
     Indication: BIPOLAR DISORDER
     Dosage: 200MG Per day
     Route: 048
     Dates: start: 2010
  3. PRENATAL VITAMINS [Concomitant]
  4. CELEXA [Concomitant]

REACTIONS (1)
  - Exposure during pregnancy [Unknown]
